FAERS Safety Report 9229671 (Version 2)
Quarter: 2013Q2

REPORT INFORMATION
  Report Type: Report from Study
  Country: PL (occurrence: PL)
  Receive Date: 20130415
  Receipt Date: 20130509
  Transmission Date: 20140414
  Serious: Yes (Hospitalization)
  Sender: FDA-Public Use
  Company Number: PL-BIOGENIDEC-2013BI032602

PATIENT
  Age: 43 Year
  Sex: Female
  Weight: 75 kg

DRUGS (4)
  1. BG00012 [Suspect]
     Indication: MULTIPLE SCLEROSIS
     Route: 048
     Dates: start: 20100409
  2. SORBIFER [Concomitant]
     Indication: ANAEMIA
     Dates: start: 2010
  3. LUXETA [Concomitant]
     Indication: DEPRESSION
     Dates: start: 2002
  4. TEGRETOL [Concomitant]
     Indication: DEPRESSION
     Dates: start: 2002

REACTIONS (1)
  - Endometrial hyperplasia [Recovered/Resolved]
